FAERS Safety Report 4278829-2 (Version None)
Quarter: 2004Q1

REPORT INFORMATION
  Report Type: 
  Country: None (occurrence: None)
  Receive Date: 20040126
  Receipt Date: 20040113
  Transmission Date: 20041129
  Serious: Yes (Hospitalization)
  Sender: FDA-Public Use
  Company Number: US-BRISTOL-MYERS SQUIBB COMPANY-12477246

PATIENT
  Age: 64 Year
  Sex: Male

DRUGS (8)
  1. PACLITAXEL [Suspect]
     Indication: OESOPHAGEAL CARCINOMA
     Route: 042
     Dates: start: 20030716, end: 20030716
  2. CARBOPLATIN [Suspect]
     Indication: OESOPHAGEAL CARCINOMA
     Route: 042
     Dates: start: 20030716, end: 20030716
  3. CELEBREX [Suspect]
     Indication: OESOPHAGEAL CARCINOMA
     Route: 048
     Dates: start: 20030620, end: 20031205
  4. CISPLATIN [Suspect]
     Indication: OESOPHAGEAL CARCINOMA
     Dates: start: 20031215, end: 20031218
  5. IRINOTECAN [Suspect]
     Indication: OESOPHAGEAL CARCINOMA
     Dates: start: 20031215, end: 20031218
  6. MEGACE [Concomitant]
  7. REGLAN [Concomitant]
  8. PROTONIX [Concomitant]

REACTIONS (7)
  - DEHYDRATION [None]
  - MASS [None]
  - METASTASES TO LIVER [None]
  - METASTASES TO LUNG [None]
  - METASTASES TO THE MEDIASTINUM [None]
  - OESOPHAGEAL ULCER [None]
  - RENAL FAILURE ACUTE [None]
